FAERS Safety Report 4630100-2 (Version None)
Quarter: 2005Q2

REPORT INFORMATION
  Report Type: 
  Country: None (occurrence: None)
  Receive Date: 20050408
  Receipt Date: 20050331
  Transmission Date: 20051028
  Serious: Yes (Hospitalization, Disabling)
  Sender: FDA-Public Use
  Company Number: US-MERCK-0504USA00083

PATIENT
  Age: 55 Year
  Sex: Female

DRUGS (6)
  1. VYTORIN [Suspect]
     Indication: BLOOD CHOLESTEROL INCREASED
     Route: 048
     Dates: start: 20040901
  2. CAPTOPRIL [Concomitant]
     Route: 065
  3. SUCRALFATE [Concomitant]
     Route: 065
  4. CYMBALTA [Concomitant]
     Route: 065
  5. LORA TAB [Concomitant]
     Route: 065
  6. PREDNISONE [Concomitant]
     Route: 065

REACTIONS (6)
  - BONE INFECTION [None]
  - HEADACHE [None]
  - HEPATIC ENZYME INCREASED [None]
  - LOCALISED INFECTION [None]
  - MUSCULOSKELETAL DISORDER [None]
  - MYALGIA [None]
